FAERS Safety Report 18507020 (Version 1)
Quarter: 2020Q4

REPORT INFORMATION
  Report Type: Report from Study
  Country: US (occurrence: US)
  Receive Date: 20201116
  Receipt Date: 20201116
  Transmission Date: 20210114
  Serious: Yes (Other)
  Sender: FDA-Public Use
  Company Number: US-BIOGEN-2020BI00943798

PATIENT
  Sex: Female

DRUGS (1)
  1. TECFIDERA [Suspect]
     Active Substance: DIMETHYL FUMARATE
     Indication: MULTIPLE SCLEROSIS
     Dosage: STARTING DOSE
     Route: 048

REACTIONS (8)
  - Muscular weakness [Not Recovered/Not Resolved]
  - Pruritus [Not Recovered/Not Resolved]
  - Spinal fracture [Unknown]
  - Feeling hot [Not Recovered/Not Resolved]
  - Back disorder [Not Recovered/Not Resolved]
  - Osteoporosis [Unknown]
  - Multiple sclerosis [Not Recovered/Not Resolved]
  - Erythema [Not Recovered/Not Resolved]
